FAERS Safety Report 6141763-7 (Version None)
Quarter: 2009Q2

REPORT INFORMATION
  Report Type: 
  Country: None (occurrence: None)
  Receive Date: 20090402
  Receipt Date: 20080903
  Transmission Date: 20091009
  Serious: No
  Sender: FDA-Public Use
  Company Number: US-ABBOTT-08P-163-0459150-00

PATIENT
  Sex: Female
  Weight: 90.8 kg

DRUGS (6)
  1. LUPRON DEPOT [Suspect]
     Indication: UTERINE LEIOMYOMA
     Route: 030
     Dates: start: 20060501
  2. LUPRON DEPOT [Suspect]
     Indication: MENORRHAGIA
     Route: 030
  3. LUPRON DEPOT [Suspect]
     Indication: UTERINE LEIOMYOMA
     Route: 030
  4. LUPRON DEPOT [Suspect]
     Indication: MENORRHAGIA
  5. TAMOXIFEN CITRATE [Concomitant]
     Indication: BREAST CANCER
     Dosage: NOT REPORTED
  6. ADD-BACK [Concomitant]
     Indication: HORMONE REPLACEMENT THERAPY
     Dosage: NOT REPORTED

REACTIONS (5)
  - GINGIVAL ABSCESS [None]
  - GINGIVAL BLEEDING [None]
  - GINGIVAL PAIN [None]
  - GINGIVAL RECESSION [None]
  - GINGIVAL SWELLING [None]
